FAERS Safety Report 12418783 (Version 1)
Quarter: 2016Q2

REPORT INFORMATION
  Report Type: Spontaneous
  Country: DE (occurrence: DE)
  Receive Date: 20160531
  Receipt Date: 20160531
  Transmission Date: 20160815
  Serious: Yes (Other)
  Sender: FDA-Public Use
  Company Number: DE-AUROBINDO-AUR-APL-2016-06396

PATIENT

DRUGS (4)
  1. PAROXETINE 20MG [Suspect]
     Active Substance: PAROXETINE
     Dosage: UNK
  2. PAROXETINE 20MG [Suspect]
     Active Substance: PAROXETINE
     Indication: DEPRESSION
     Dosage: 20 MG, UNK
     Route: 048
     Dates: start: 2002, end: 2014
  3. PAROXETINE 20MG [Suspect]
     Active Substance: PAROXETINE
     Dosage: 10 MG, UNK
     Route: 048
     Dates: start: 2014, end: 2015
  4. SEROXAT [Suspect]
     Active Substance: PAROXETINE HYDROCHLORIDE
     Indication: DEPRESSION
     Dosage: UNK
     Route: 048
     Dates: start: 201509, end: 201604

REACTIONS (6)
  - Suicidal ideation [Not Recovered/Not Resolved]
  - Aggression [Not Recovered/Not Resolved]
  - Mood swings [Not Recovered/Not Resolved]
  - Drug withdrawal syndrome [Not Recovered/Not Resolved]
  - Constipation [Not Recovered/Not Resolved]
  - Loss of libido [Not Recovered/Not Resolved]

NARRATIVE: CASE EVENT DATE: 2014
